FAERS Safety Report 25796803 (Version 1)
Quarter: 2025Q3

REPORT INFORMATION
  Report Type: Spontaneous
  Country: US (occurrence: US)
  Receive Date: 20250912
  Receipt Date: 20250912
  Transmission Date: 20251020
  Serious: No
  Sender: LYNE LABORATORIES
  Company Number: US-Lyne Laboratories Inc.-2184399

PATIENT
  Sex: Male

DRUGS (6)
  1. NYSTATIN [Suspect]
     Active Substance: NYSTATIN
     Indication: Dermatitis diaper
  2. DESITIN RAPID RELIEF DIAPER RASH [Concomitant]
     Active Substance: ZINC OXIDE
  3. BABY POWDER [Concomitant]
     Active Substance: ZINC OXIDE
  4. Boudreaux [Concomitant]
  5. A AND D [Concomitant]
  6. AQUAPHOR [Concomitant]
     Active Substance: PETROLATUM

REACTIONS (1)
  - Drug ineffective for unapproved indication [Unknown]
